FAERS Safety Report 6693260-8 (Version None)
Quarter: 2010Q2

REPORT INFORMATION
  Report Type: 
  Country: None (occurrence: None)
  Receive Date: 20100422
  Receipt Date: 20100416
  Transmission Date: 20101027
  Serious: Yes (Hospitalization, Disabling, Other)
  Sender: FDA-Public Use
  Company Number: US-MERCK-0905USA02289

PATIENT
  Age: 79 Year
  Sex: Female

DRUGS (7)
  1. FOSAMAX [Suspect]
     Indication: OSTEOPOROSIS
     Route: 048
     Dates: start: 20050101, end: 20090201
  2. LIPITOR [Concomitant]
     Indication: BLOOD CHOLESTEROL INCREASED
     Route: 065
     Dates: start: 20020101
  3. LIPITOR [Concomitant]
     Indication: HYPERLIPIDAEMIA
     Route: 065
     Dates: start: 20020101
  4. ASPIRIN [Concomitant]
     Route: 065
  5. QUINARETIC [Concomitant]
     Indication: HYPERTENSION
     Route: 065
     Dates: start: 19950101
  6. CALTRATE [Concomitant]
     Indication: OSTEOPOROSIS
     Route: 065
  7. TAZTIA XT [Concomitant]
     Indication: HYPERTENSION
     Route: 065
     Dates: start: 19950101

REACTIONS (12)
  - AGEUSIA [None]
  - ANGIOPATHY [None]
  - CAROTID ARTERY STENOSIS [None]
  - FEMUR FRACTURE [None]
  - HYPOAESTHESIA [None]
  - JAW FRACTURE [None]
  - ORAL CAVITY FISTULA [None]
  - ORAL INFECTION [None]
  - OSTEOMYELITIS [None]
  - OSTEONECROSIS [None]
  - SIALOADENITIS [None]
  - SYNCOPE [None]
